FAERS Safety Report 7716874-2 (Version None)
Quarter: 2011Q3

REPORT INFORMATION
  Report Type: 
  Country: None (occurrence: None)
  Receive Date: 20110829
  Receipt Date: 20110826
  Transmission Date: 20111222
  Serious: Yes (Hospitalization)
  Sender: FDA-Public Use
  Company Number: JP-ABBOTT-11P-087-0716196-00

PATIENT
  Sex: Female
  Weight: 33 kg

DRUGS (12)
  1. HUMIRA [Suspect]
     Indication: RHEUMATOID ARTHRITIS
     Dates: start: 20081208, end: 20110131
  2. METHOTREXATE [Concomitant]
     Dates: start: 20110425
  3. LEVODOPA/CARBIDOPA HYDRATE [Concomitant]
     Indication: PARKINSON'S DISEASE
     Route: 048
  4. CLONAZEPAM [Concomitant]
     Indication: PARKINSON'S DISEASE
     Route: 048
  5. CABERGOLINE [Concomitant]
     Indication: PARKINSON'S DISEASE
     Route: 048
  6. SELEGILINE HCL [Concomitant]
     Indication: PARKINSON'S DISEASE
     Route: 048
     Dates: start: 20060309
  7. TRIHEXYPHENIDYL HCL [Concomitant]
     Indication: PARKINSON'S DISEASE
     Route: 048
     Dates: start: 20070817
  8. METHOTREXATE [Concomitant]
     Indication: RHEUMATOID ARTHRITIS
     Route: 048
     Dates: start: 20080310, end: 20110228
  9. PRAMIPEXOLE HYDROCHLORIDE HYDRATE [Concomitant]
     Indication: PARKINSON'S DISEASE
     Route: 048
     Dates: start: 20101122
  10. ENTACAPONE [Concomitant]
     Indication: PARKINSON'S DISEASE
     Route: 048
     Dates: start: 20091005
  11. FOLIC ACID [Concomitant]
     Indication: RHEUMATOID ARTHRITIS
     Route: 048
     Dates: start: 20080310, end: 20110228
  12. DOMPERIDONE [Concomitant]
     Indication: PARKINSON'S DISEASE
     Route: 048
     Dates: start: 20060907

REACTIONS (2)
  - ORGANISING PNEUMONIA [None]
  - HYPOCOMPLEMENTAEMIA [None]
